FAERS Safety Report 15507881 (Version 2)
Quarter: 2018Q4

REPORT INFORMATION
  Report Type: Spontaneous
  Country: US (occurrence: US)
  Receive Date: 20181016
  Receipt Date: 20181025
  Transmission Date: 20190205
  Serious: No
  Sender: FDA-Public Use
  Company Number: US-MYLANLABS-2018M1072565

PATIENT
  Sex: Female

DRUGS (3)
  1. METHIMAZOLE TABLETS, USP [Suspect]
     Active Substance: METHIMAZOLE
     Indication: HYPERTHYROIDISM
     Dosage: 5 MG, BID
     Route: 048
     Dates: start: 20180707, end: 20180806
  2. METHIMAZOLE TABLETS, USP [Suspect]
     Active Substance: METHIMAZOLE
     Dosage: 5 MG, BID
     Route: 048
     Dates: start: 20180907, end: 20180917
  3. METHIMAZOLE TABLETS, USP [Suspect]
     Active Substance: METHIMAZOLE
     Dosage: 5 MG, UNK
     Route: 048
     Dates: start: 201809

REACTIONS (8)
  - Insomnia [Unknown]
  - Frequent bowel movements [Unknown]
  - Drug ineffective [Unknown]
  - Feeling hot [Unknown]
  - Hyperhidrosis [Unknown]
  - Heart rate increased [Unknown]
  - Anxiety [Unknown]
  - Weight decreased [Unknown]
